FAERS Safety Report 16372914 (Version 1)
Quarter: 2019Q2

REPORT INFORMATION
  Report Type: Report from Study
  Country: US (occurrence: US)
  Receive Date: 20190530
  Receipt Date: 20190530
  Transmission Date: 20190711
  Serious: Yes (Death)
  Sender: FDA-Public Use
  Company Number: US-TAIHO ONCOLOGY  INC-EU-2019-01805

PATIENT
  Age: 56 Year
  Sex: Male
  Weight: 74.32 kg

DRUGS (12)
  1. HYDROMORPHONE [Concomitant]
     Active Substance: HYDROMORPHONE
     Dosage: NI
  2. FENTANYL. [Concomitant]
     Active Substance: FENTANYL
     Dosage: NI
  3. METOCLOPRAMIDE. [Concomitant]
     Active Substance: METOCLOPRAMIDE
     Dosage: NI
  4. SANCUSO [Concomitant]
     Active Substance: GRANISETRON
     Dosage: NI
  5. OCTREOTIDE. [Concomitant]
     Active Substance: OCTREOTIDE
     Dosage: NI
  6. TRANSDERM SCOP [Concomitant]
     Active Substance: SCOPOLAMINE
     Dosage: NI
  7. OXYCODONE [Concomitant]
     Active Substance: OXYCODONE
     Dosage: NI
  8. LONSURF [Suspect]
     Active Substance: TIPIRACIL HYDROCHLORIDE\TRIFLURIDINE
     Indication: COLORECTAL CANCER METASTATIC
     Dosage: CURRENT CYCLE UNKNOWN.?LONSURF STRENGH: 15MG + 20MG
     Route: 048
     Dates: start: 20190204
  9. OLANZAPINE. [Concomitant]
     Active Substance: OLANZAPINE
     Dosage: NI
  10. MORPHINE [Concomitant]
     Active Substance: MORPHINE
     Dosage: NI
  11. CLOTRIMAZOLE. [Concomitant]
     Active Substance: CLOTRIMAZOLE
     Dosage: NI
  12. POTASSIUM [Concomitant]
     Active Substance: POTASSIUM
     Dosage: NI

REACTIONS (1)
  - Death [Fatal]

NARRATIVE: CASE EVENT DATE: 20190421
